FAERS Safety Report 8992836 (Version 1)
Quarter: 2013Q1

REPORT INFORMATION
  Report Type: Spontaneous
  Country: US (occurrence: US)
  Receive Date: 20130102
  Receipt Date: 20130102
  Transmission Date: 20140127
  Serious: Yes (Hospitalization)
  Sender: FDA-Public Use
  Company Number: US-BAYER-2012-136317

PATIENT
  Age: 35 Year
  Sex: Female

DRUGS (3)
  1. YASMIN [Suspect]
  2. PREDNISONE [Concomitant]
     Dosage: 5 MG, PER DAY
     Route: 048
     Dates: start: 200709
  3. IBUPROFEN [Concomitant]
     Dosage: UNK
     Route: 048
     Dates: start: 200709

REACTIONS (1)
  - Pulmonary embolism [None]
